FAERS Safety Report 25263334 (Version 1)
Quarter: 2025Q2

REPORT INFORMATION
  Report Type: Spontaneous
  Country: US (occurrence: None)
  Receive Date: 20250502
  Receipt Date: 20250502
  Transmission Date: 20250717
  Serious: Yes (Hospitalization)
  Sender: FDA-CTU
  Company Number: None

PATIENT
  Age: 40 Year
  Sex: Female

DRUGS (9)
  1. SIMLANDI [Suspect]
     Active Substance: ADALIMUMAB-RYVK
     Indication: Crohn^s disease
     Route: 058
     Dates: start: 20250116
  2. ATOMOXETINE [Concomitant]
     Active Substance: ATOMOXETINE
  3. BUPROPION [Concomitant]
     Active Substance: BUPROPION
  4. CYANOCOBALAMIN [Concomitant]
     Active Substance: CYANOCOBALAMIN
  5. HU MIRA CF [Concomitant]
  6. HYDROXYZINE HYDROCHLORIDE [Concomitant]
     Active Substance: HYDROXYZINE HYDROCHLORIDE
  7. IRBESAR/HCTZ [Concomitant]
  8. IRBESARTAN [Concomitant]
     Active Substance: IRBESARTAN
  9. MIRTAZAPINE [Concomitant]
     Active Substance: MIRTAZAPINE

REACTIONS (3)
  - Impaired quality of life [None]
  - Dizziness [None]
  - Therapy interrupted [None]

NARRATIVE: CASE EVENT DATE: 20250428
